FAERS Safety Report 5735301-8 (Version None)
Quarter: 2008Q2

REPORT INFORMATION
  Report Type: 
  Country: None (occurrence: None)
  Receive Date: 20080505
  Receipt Date: 20080218
  Transmission Date: 20081010
  Serious: Yes (Hospitalization)
  Sender: FDA-Public Use
  Company Number: PHEH2008US01060

PATIENT
  Age: 77 Year
  Sex: Female

DRUGS (6)
  1. EXELON [Suspect]
     Indication: DEMENTIA
     Dosage: 4.6 MG, QD, TRANSDERMAL ; 9.5 MG, QD, TRANSDERMAL
     Route: 062
     Dates: start: 20071025, end: 20071201
  2. EXELON [Suspect]
     Indication: DEMENTIA
     Dosage: 4.6 MG, QD, TRANSDERMAL ; 9.5 MG, QD, TRANSDERMAL
     Route: 062
     Dates: start: 20071201, end: 20071201
  3. LEVOTHYROXINE SODIUM [Concomitant]
  4. GABAPENTIN [Concomitant]
  5. PREMPRO [Concomitant]
  6. ZYRTEC [Concomitant]

REACTIONS (6)
  - DEMENTIA [None]
  - DIARRHOEA [None]
  - DISEASE PROGRESSION [None]
  - NAUSEA [None]
  - PANCREATITIS [None]
  - VOMITING [None]
